FAERS Safety Report 4417632-7 (Version None)
Quarter: 2004Q3

REPORT INFORMATION
  Report Type: 
  Country: None (occurrence: None)
  Receive Date: 20040803
  Receipt Date: 20040730
  Transmission Date: 20050211
  Serious: Yes (Hospitalization)
  Sender: FDA-Public Use
  Company Number: L04-TUR-02577-01

PATIENT
  Age: 38 Year
  Sex: Female

DRUGS (3)
  1. CITALOPRAM [Suspect]
     Indication: INTENTIONAL OVERDOSE
     Dosage: 1120 MG ONCE PO
     Route: 048
  2. RISPERIDONE [Suspect]
     Indication: INTENTIONAL OVERDOSE
     Dosage: 160 MG ONCE PO
     Route: 048
  3. ACETAMINOPHEN [Suspect]
     Indication: INTENTIONAL OVERDOSE
     Dosage: 1500 MG ONCE PO
     Route: 048

REACTIONS (8)
  - BLOOD PRESSURE DIASTOLIC DECREASED [None]
  - DEPRESSION [None]
  - DRUG INTERACTION [None]
  - FEELING GUILTY [None]
  - HEART RATE INCREASED [None]
  - INTENTIONAL OVERDOSE [None]
  - STUPOR [None]
  - SUICIDE ATTEMPT [None]
